APPROVED DRUG PRODUCT: ETODOLAC
Active Ingredient: ETODOLAC
Strength: 500MG
Dosage Form/Route: TABLET;ORAL
Application: A074892 | Product #002
Applicant: WATSON LABORATORIES INC
Approved: Oct 29, 1998 | RLD: No | RS: No | Type: DISCN